FAERS Safety Report 9267169 (Version 1)
Quarter: 2013Q2

REPORT INFORMATION
  Report Type: Spontaneous
  Country: FR (occurrence: FR)
  Receive Date: 20130502
  Receipt Date: 20130502
  Transmission Date: 20140414
  Serious: Yes (Life-Threatening)
  Sender: FDA-Public Use
  Company Number: FR-SANOFI-AVENTIS-2013SA044262

PATIENT
  Age: 41 Year
  Sex: Male

DRUGS (4)
  1. ELOXATINE [Suspect]
     Indication: COLON CANCER
     Dosage: STRENGTH: 150 MG
     Route: 042
     Dates: start: 20130228, end: 20130228
  2. ELOXATINE [Suspect]
     Indication: COLON CANCER
     Dosage: STRENGTH: 150 MG
     Route: 042
     Dates: start: 20130322, end: 20130322
  3. ERBITUX [Concomitant]
     Indication: COLON CANCER
     Route: 042
     Dates: start: 20130228
  4. FLUORO-URACIL [Concomitant]
     Route: 042
     Dates: start: 20130228

REACTIONS (4)
  - Shock [Recovered/Resolved]
  - Dyspnoea [Recovered/Resolved]
  - Cyanosis [Recovered/Resolved]
  - Tremor [Recovered/Resolved]
